FAERS Safety Report 4976083-7 (Version None)
Quarter: 2006Q2

REPORT INFORMATION
  Report Type: 
  Country: None (occurrence: None)
  Receive Date: 20060412
  Receipt Date: 20060407
  Transmission Date: 20061013
  Serious: Yes (Hospitalization)
  Sender: FDA-Public Use
  Company Number: UKP06000103

PATIENT
  Age: 73 Year
  Sex: Female

DRUGS (10)
  1. DIDRONEL [Suspect]
  2. HUMIRA [Suspect]
     Indication: RHEUMATOID ARTHRITIS
     Dosage: 40 MG, EVERY 2WK
     Dates: start: 20040415
  3. FOLIC ACID [Suspect]
  4. RANITIDINE [Suspect]
  5. TENORETIC 100 [Suspect]
  6. ALENDRONATE SODIUM [Suspect]
  7. OMEPRAZOLE [Suspect]
  8. ARTHROTEC [Suspect]
  9. METHOTREXATE [Concomitant]
  10. PREDNISOLONE [Concomitant]

REACTIONS (3)
  - DIARRHOEA [None]
  - GASTROENTERITIS ESCHERICHIA COLI [None]
  - URINARY TRACT INFECTION [None]
